FAERS Safety Report 19679153 (Version 1)
Quarter: 2021Q3

REPORT INFORMATION
  Report Type: Spontaneous
  Country: JP (occurrence: JP)
  Receive Date: 20210809
  Receipt Date: 20210809
  Transmission Date: 20211014
  Serious: Yes (Death, Other)
  Sender: FDA-Public Use
  Company Number: JP-SYNEX-T202103473

PATIENT
  Age: 1 Day
  Sex: Male
  Weight: 1 kg

DRUGS (1)
  1. INOFLO [Suspect]
     Active Substance: NITRIC OXIDE
     Indication: PRODUCT USED FOR UNKNOWN INDICATION
     Dosage: UNK (INHALATION)
     Route: 055

REACTIONS (4)
  - Subcapsular hepatic haematoma [Fatal]
  - Product use issue [Unknown]
  - Shock haemorrhagic [Fatal]
  - Respiratory failure [Unknown]
